FAERS Safety Report 6645713-6 (Version None)
Quarter: 2010Q1

REPORT INFORMATION
  Report Type: 
  Country: None (occurrence: None)
  Receive Date: 20100323
  Receipt Date: 20100319
  Transmission Date: 20100710
  Serious: Yes (Other)
  Sender: FDA-Public Use
  Company Number: GB-WYE-G05791510

PATIENT
  Age: 41 Year
  Sex: Female
  Weight: 110 kg

DRUGS (3)
  1. VENLAFAXINE HYDROCHLORIDE [Suspect]
     Indication: DEPRESSION
     Dosage: 150MG, FREQUENCY UNKNOWN
     Route: 048
     Dates: start: 20091103, end: 20091217
  2. METFORMIN HYDROCHLORIDE [Concomitant]
     Indication: DIABETES MELLITUS
     Route: 048
  3. CYPROTERONE [Concomitant]
     Dosage: 25MG, FREQUENCY UNKNOWN
     Route: 048

REACTIONS (2)
  - DYSPNOEA [None]
  - TACHYPNOEA [None]
